FAERS Safety Report 17084168 (Version 1)
Quarter: 2019Q4

REPORT INFORMATION
  Report Type: Spontaneous
  Country: US (occurrence: US)
  Receive Date: 20191127
  Receipt Date: 20191127
  Transmission Date: 20200122
  Serious: Yes (Other)
  Sender: FDA-Public Use
  Company Number: US-ANAZAOHEALTH CORPORATION - 275198

PATIENT
  Age: 53 Year
  Sex: Female
  Weight: 60.91 kg

DRUGS (1)
  1. PATIENT HAS HAD TESTOSTERONE PELLET INSERTIONS SINCE FEBRUARY OF 2018. [Suspect]
     Active Substance: TESTOSTERONE
     Indication: HORMONE REPLACEMENT THERAPY
     Route: 058
     Dates: start: 20190916

REACTIONS (1)
  - Metastases to breast [Recovering/Resolving]

NARRATIVE: CASE EVENT DATE: 20191031
